FAERS Safety Report 22928804 (Version 10)
Quarter: 2025Q2

REPORT INFORMATION
  Report Type: Spontaneous
  Country: US (occurrence: US)
  Receive Date: 20230911
  Receipt Date: 20250526
  Transmission Date: 20250717
  Serious: No
  Sender: NOVARTIS
  Company Number: US-002147023-NVSC2023US194926

PATIENT
  Sex: Female

DRUGS (5)
  1. PROMACTA [Suspect]
     Active Substance: ELTROMBOPAG OLAMINE
     Indication: Immune thrombocytopenia
     Dosage: 50 MG, QD
     Route: 048
     Dates: start: 202308
  2. TYVASO DPI [Concomitant]
     Active Substance: TREPROSTINIL
     Indication: Product used for unknown indication
     Route: 065
  3. OPSUMIT [Concomitant]
     Active Substance: MACITENTAN
     Indication: Product used for unknown indication
     Route: 065
  4. TADALAFIL [Concomitant]
     Active Substance: TADALAFIL
     Indication: Product used for unknown indication
     Route: 065
  5. MACITENTAN\TADALAFIL [Concomitant]
     Active Substance: MACITENTAN\TADALAFIL
     Indication: Product used for unknown indication
     Route: 065

REACTIONS (16)
  - Oral pain [Recovered/Resolved]
  - Oropharyngeal pain [Not Recovered/Not Resolved]
  - Large intestine infection [Unknown]
  - Throat irritation [Not Recovered/Not Resolved]
  - Glossodynia [Not Recovered/Not Resolved]
  - Dyspnoea [Not Recovered/Not Resolved]
  - Chest discomfort [Unknown]
  - Blood pressure decreased [Recovered/Resolved]
  - Oxygen saturation decreased [Unknown]
  - Toothache [Not Recovered/Not Resolved]
  - Dizziness [Unknown]
  - Product size issue [Unknown]
  - Cough [Unknown]
  - Stomatitis [Unknown]
  - Productive cough [Unknown]
  - Dysphagia [Unknown]
